FAERS Safety Report 20595533 (Version 1)
Quarter: 2022Q1

REPORT INFORMATION
  Report Type: Spontaneous
  Country: US (occurrence: US)
  Receive Date: 20220315
  Receipt Date: 20220315
  Transmission Date: 20220423
  Serious: No
  Sender: FDA-Public Use
  Company Number: US-GW PHARMA-202203USGW01210

PATIENT
  Sex: Female

DRUGS (2)
  1. EPIDIOLEX [Suspect]
     Active Substance: CANNABIDIOL
     Indication: Lennox-Gastaut syndrome
     Dosage: 3000 MILLIGRAM, QD (700 MG EVERY MORNING, THEN 500 MG IN THE AFTERNOON AND 1800 MG EVERY EVENING)
     Route: 048
     Dates: start: 20190402
  2. EPIDIOLEX [Suspect]
     Active Substance: CANNABIDIOL
     Dosage: 2200 MILLIGRAM, QD (500 MG EVERY MORNING, 1200 MG AT 3PM AND 500 MG AT NIGHT)
     Route: 048

REACTIONS (2)
  - Diarrhoea [Not Recovered/Not Resolved]
  - Off label use [Unknown]
